FAERS Safety Report 10415425 (Version 2)
Quarter: 2015Q2

REPORT INFORMATION
  Report Type: Spontaneous
  Country: FR (occurrence: None)
  Receive Date: 20140826
  Receipt Date: 20150428
  Transmission Date: 20150821
  Serious: Yes (Hospitalization, Other)
  Sender: FDA-Public Use
  Company Number: DEP_02245_2014

PATIENT
  Age: 85 Year
  Sex: Female

DRUGS (8)
  1. GABAPENTIN (GABAPENTIN) [Suspect]
     Active Substance: GABAPENTIN
     Indication: OFF LABEL USE
  2. BISOPROLOL [Concomitant]
     Active Substance: BISOPROLOL
  3. REPAGLINIDE. [Concomitant]
     Active Substance: REPAGLINIDE
  4. ACETYLSALICYLATE LYSINE [Concomitant]
     Active Substance: ASPIRIN DL-LYSINE
  5. ESOMEPRAZOLE [Concomitant]
     Active Substance: ESOMEPRAZOLE
  6. GABAPENTIN (GABAPENTIN) [Suspect]
     Active Substance: GABAPENTIN
     Indication: PARTIAL SEIZURES
  7. IRBESARTAN. [Concomitant]
     Active Substance: IRBESARTAN
  8. ATORVASTATIN [Concomitant]
     Active Substance: ATORVASTATIN

REACTIONS (9)
  - Altered state of consciousness [None]
  - Toxic encephalopathy [None]
  - Hyperammonaemia [None]
  - Confusional state [None]
  - Encephalopathy [None]
  - Memory impairment [None]
  - Disorientation [None]
  - Toxicity to various agents [None]
  - Cognitive disorder [None]
